FAERS Safety Report 20071650 (Version 1)
Quarter: 2021Q4

REPORT INFORMATION
  Report Type: Spontaneous
  Country: CN (occurrence: None)
  Receive Date: 20211116
  Receipt Date: 20211116
  Transmission Date: 20220303
  Serious: Yes (Other)
  Sender: FDA-Public Use
  Company Number: CN-ROCHE-2957308

PATIENT
  Age: 35 Year
  Sex: Male

DRUGS (7)
  1. TECENTRIQ [Suspect]
     Active Substance: ATEZOLIZUMAB
     Indication: Hepatic cancer
     Route: 065
     Dates: start: 2020
  2. AVASTIN [Suspect]
     Active Substance: BEVACIZUMAB
     Indication: Hepatic cancer
     Route: 065
     Dates: start: 2020
  3. EPIRUBICIN [Concomitant]
     Active Substance: EPIRUBICIN
     Indication: Hepatic cancer
     Dates: start: 20201103
  4. EPIRUBICIN [Concomitant]
     Active Substance: EPIRUBICIN
     Dates: start: 20210112
  5. EPIRUBICIN [Concomitant]
     Active Substance: EPIRUBICIN
     Dates: start: 20210301
  6. LOBAPLATIN [Concomitant]
     Active Substance: LOBAPLATIN
     Indication: Hepatic cancer
     Dates: start: 20201209
  7. LOBAPLATIN [Concomitant]
     Active Substance: LOBAPLATIN
     Dates: start: 20210414

REACTIONS (1)
  - Upper gastrointestinal haemorrhage [Unknown]
